FAERS Safety Report 23135472 (Version 6)
Quarter: 2024Q4

REPORT INFORMATION
  Report Type: Report from Study
  Country: US (occurrence: US)
  Receive Date: 20231101
  Receipt Date: 20241107
  Transmission Date: 20250115
  Serious: Yes (Other)
  Sender: ABBVIE
  Company Number: US-ABBVIE-5474175

PATIENT
  Age: 75 Year
  Sex: Female

DRUGS (12)
  1. RINVOQ [Suspect]
     Active Substance: UPADACITINIB
     Indication: Dermatitis atopic
     Dosage: STRENGTH: 15 MILLIGRAM
     Route: 048
     Dates: start: 202206, end: 202310
  2. RINVOQ [Suspect]
     Active Substance: UPADACITINIB
     Indication: Dermatitis atopic
     Route: 048
     Dates: start: 20230627, end: 20231013
  3. RINVOQ [Suspect]
     Active Substance: UPADACITINIB
     Indication: Dermatitis atopic
     Route: 048
  4. VALACYCLOVIR HYDROCHLORIDE [Concomitant]
     Active Substance: VALACYCLOVIR HYDROCHLORIDE
     Indication: Product used for unknown indication
  5. VALACYCLOVIR HYDROCHLORIDE [Concomitant]
     Active Substance: VALACYCLOVIR HYDROCHLORIDE
     Indication: Product used for unknown indication
  6. VALACYCLOVIR HYDROCHLORIDE [Concomitant]
     Active Substance: VALACYCLOVIR HYDROCHLORIDE
     Indication: Product used for unknown indication
  7. PREDNISOLONE ACETATE [Concomitant]
     Active Substance: PREDNISOLONE ACETATE
     Indication: Product used for unknown indication
  8. PREDNISOLONE ACETATE [Concomitant]
     Active Substance: PREDNISOLONE ACETATE
     Indication: Product used for unknown indication
  9. PREDNISOLONE [Concomitant]
     Active Substance: PREDNISOLONE
     Indication: Product used for unknown indication
  10. PREDNISONE [Concomitant]
     Active Substance: PREDNISONE
     Indication: Product used for unknown indication
  11. RESTASIS [Concomitant]
     Active Substance: CYCLOSPORINE
     Indication: Product used for unknown indication
     Dosage: RESTASIS DROPS
  12. NYSTATINA [Concomitant]
     Indication: Product used for unknown indication
     Dosage: NYSTATIN ORAL SUSPENSION, USP

REACTIONS (28)
  - Lymphoma [Unknown]
  - Rhinorrhoea [Not Recovered/Not Resolved]
  - Herpes simplex [Not Recovered/Not Resolved]
  - Cold sweat [Not Recovered/Not Resolved]
  - Headache [Not Recovered/Not Resolved]
  - Oral pain [Recovered/Resolved]
  - Visual impairment [Unknown]
  - Diarrhoea [Not Recovered/Not Resolved]
  - Blister [Unknown]
  - Night sweats [Unknown]
  - Abnormal sensation in eye [Unknown]
  - Proctalgia [Unknown]
  - Vomiting [Not Recovered/Not Resolved]
  - Nausea [Not Recovered/Not Resolved]
  - Stomatitis [Unknown]
  - Lip erythema [Not Recovered/Not Resolved]
  - Haematochezia [Not Recovered/Not Resolved]
  - Eye pain [Unknown]
  - Unevaluable event [Unknown]
  - Oral pain [Unknown]
  - Lip blister [Not Recovered/Not Resolved]
  - Lip haemorrhage [Not Recovered/Not Resolved]
  - Haemorrhagic diathesis [Unknown]
  - Lip injury [Not Recovered/Not Resolved]
  - Scar [Not Recovered/Not Resolved]
  - Lip swelling [Not Recovered/Not Resolved]
  - Stomatitis [Not Recovered/Not Resolved]
  - Oral herpes [Not Recovered/Not Resolved]

NARRATIVE: CASE EVENT DATE: 20220101
